FAERS Safety Report 10588421 (Version 1)
Quarter: 2014Q4

REPORT INFORMATION
  Report Type: Spontaneous
  Country: US (occurrence: US)
  Receive Date: 20141117
  Receipt Date: 20141117
  Transmission Date: 20150529
  Serious: Yes (Other)
  Sender: FDA-Public Use
  Company Number: US-PFIZER INC-2014310387

PATIENT
  Sex: Female

DRUGS (1)
  1. MISOPROSTOL. [Suspect]
     Active Substance: MISOPROSTOL
     Indication: GASTROINTESTINAL MOTILITY DISORDER
     Dosage: 100 ?G, 2X/DAY

REACTIONS (3)
  - Rectal haemorrhage [Unknown]
  - Dermatitis contact [Unknown]
  - Off label use [Unknown]
